FAERS Safety Report 9115811 (Version 2)
Quarter: 2013Q2

REPORT INFORMATION
  Report Type: Spontaneous
  Country: DE (occurrence: DE)
  Receive Date: 20130225
  Receipt Date: 20130509
  Transmission Date: 20140414
  Serious: Yes (Hospitalization, Other)
  Sender: FDA-Public Use
  Company Number: DE-GLAXOSMITHKLINE-A1013300A

PATIENT
  Sex: Male
  Weight: 90 kg

DRUGS (1)
  1. NICORETTE [Suspect]
     Indication: SMOKING CESSATION THERAPY
     Route: 002
     Dates: start: 20111101

REACTIONS (3)
  - Tongue neoplasm malignant stage unspecified [Not Recovered/Not Resolved]
  - Intentional drug misuse [Unknown]
  - Glossodynia [Unknown]
